FAERS Safety Report 9520853 (Version 1)
Quarter: 2013Q1

REPORT INFORMATION
  Report Type: Spontaneous
  Country: US (occurrence: None)
  Receive Date: 20130305
  Receipt Date: 20130305
  Transmission Date: 20140127
  Serious: Yes (Other)
  Sender: FDA-Public Use
  Company Number: 163-21880-12101962

PATIENT
  Age: 63 Year
  Sex: Female
  Weight: 58.97 kg

DRUGS (18)
  1. REVLIMID [Suspect]
     Indication: PLASMA CELL MYELOMA
     Dosage: 15 MG, 21 IN 21 D, PO
     Route: 048
     Dates: start: 20120428
  2. ASA (ACETYLSALICYLIC ACID) [Concomitant]
  3. CITRACAL (CALCIUM CITRATE) [Concomitant]
  4. CLIMARA (ESTRADIOL) [Concomitant]
  5. DEXAMETHASONE (DEXAMETHASONE) [Concomitant]
  6. ESTRACE (OTHER ESTROGENS) [Concomitant]
  7. FISH OIL (FISH OIL) [Concomitant]
  8. FLUTICASONE (FLUTICASONE) [Concomitant]
  9. GABAPENTIN (GABAPENTIN) [Concomitant]
  10. HYDROCODONE/APAP (VICODIN) [Concomitant]
  11. IMITREX (SUMATRIPTAN) [Concomitant]
  12. LORATIDINE [Concomitant]
  13. MULTIPLE VITAMIN (MULTIVITAMINS) [Concomitant]
  14. MYLANTA (MYLANTA) [Concomitant]
  15. PRILOSEC [Concomitant]
  16. TYLENOL (PARACETAMOL) [Concomitant]
  17. VITAMIN B (VITAMIN B) [Concomitant]
  18. AREDIA (PAMIDRONATE DISODIUM) [Concomitant]

REACTIONS (16)
  - Spinal compression fracture [None]
  - Pulmonary congestion [None]
  - Chills [None]
  - Hyperhidrosis [None]
  - Sinus headache [None]
  - Chest discomfort [None]
  - Influenza [None]
  - Productive cough [None]
  - Dry mouth [None]
  - Oropharyngeal pain [None]
  - Headache [None]
  - Bone pain [None]
  - Fatigue [None]
  - Skin irritation [None]
  - Paraesthesia [None]
  - Back pain [None]
